FAERS Safety Report 7833870-5 (Version None)
Quarter: 2011Q4

REPORT INFORMATION
  Report Type: 
  Country: None (occurrence: None)
  Receive Date: 20111024
  Receipt Date: 20111010
  Transmission Date: 20120403
  Serious: Yes (Other)
  Sender: FDA-Public Use
  Company Number: GB-ROCHE-783849

PATIENT
  Age: 66 Year
  Sex: Female
  Weight: 73.8 kg

DRUGS (11)
  1. DOCETAXEL [Suspect]
     Indication: BREAST CANCER
     Route: 042
     Dates: start: 20110216, end: 20110216
  2. DEXAMETHASONE [Concomitant]
     Indication: MYALGIA
     Route: 065
  3. HERCEPTIN [Suspect]
     Route: 042
  4. FLUOROURACIL [Concomitant]
     Indication: BREAST CANCER
     Route: 040
  5. CYCLOPHOSPHAMIDE [Concomitant]
     Indication: BREAST CANCER
     Route: 040
  6. EPIRUBICIN [Concomitant]
     Indication: BREAST CANCER
     Route: 065
  7. FLUCONAZOLE [Concomitant]
     Indication: CANDIDIASIS
  8. HERCEPTIN [Suspect]
     Indication: BREAST CANCER
     Route: 042
  9. PEGFILGRASTIM [Concomitant]
     Indication: PRODUCT USED FOR UNKNOWN INDICATION
     Route: 065
  10. DOCETAXEL [Suspect]
     Route: 042
     Dates: start: 20110309, end: 20110309
  11. RATIOGRASTIM [Concomitant]
     Indication: PREMEDICATION

REACTIONS (9)
  - MYALGIA [None]
  - SKIN EXFOLIATION [None]
  - SWELLING FACE [None]
  - OEDEMA PERIPHERAL [None]
  - RASH [None]
  - NEUTROPENIC SEPSIS [None]
  - CANDIDIASIS [None]
  - DRUG HYPERSENSITIVITY [None]
  - LACRIMATION INCREASED [None]
